FAERS Safety Report 8482930-7 (Version None)
Quarter: 2012Q3

REPORT INFORMATION
  Report Type: 
  Country: None (occurrence: None)
  Receive Date: 20120702
  Receipt Date: 20120621
  Transmission Date: 20120928
  Serious: Yes (Hospitalization, Other)
  Sender: FDA-Public Use
  Company Number: US-ACTELION-A-NJ2008-22125

PATIENT

DRUGS (30)
  1. TRACLEER [Suspect]
     Dosage: 125 MG, BID
     Route: 048
  2. SINGULAIR [Concomitant]
  3. SPIRONOLACTONE [Concomitant]
  4. LISINOPRIL [Concomitant]
  5. SYMBICORT [Concomitant]
  6. GAVISCON [Concomitant]
  7. PREDNISONE TAB [Concomitant]
  8. ZOLOFT [Concomitant]
  9. TRACLEER [Suspect]
     Dosage: 62.5 MG, BID
     Route: 048
     Dates: start: 20080101, end: 20080101
  10. COUMADIN [Concomitant]
  11. CALCIUM CHANNEL BLOCKERS [Concomitant]
  12. DIGOXIN [Concomitant]
  13. OXYGEN [Concomitant]
  14. TRACLEER [Suspect]
     Indication: PULMONARY ARTERIAL HYPERTENSION
     Dosage: 125 MG, BID
     Route: 048
     Dates: start: 20080101
  15. METFORMIN HCL [Concomitant]
  16. NEXIUM [Concomitant]
  17. PROZAC [Concomitant]
  18. LASIX [Concomitant]
  19. ALLOPURINOL [Concomitant]
  20. VITAMIN B-12 [Concomitant]
  21. TRACLEER [Suspect]
     Dosage: 62.5 MG, BID
     Route: 048
     Dates: start: 20080718
  22. VERAPAMIL [Concomitant]
  23. MORPHINE SULFATE [Concomitant]
  24. ADCIRCA [Concomitant]
  25. PLAVIX [Concomitant]
  26. NEURONTIN [Concomitant]
  27. DUONEB [Concomitant]
  28. DULCOLAX [Concomitant]
  29. ULTRAM [Concomitant]
  30. MIRALAX [Concomitant]

REACTIONS (14)
  - NON-CARDIAC CHEST PAIN [None]
  - DRUG INTERACTION [None]
  - SINUSITIS [None]
  - DIZZINESS EXERTIONAL [None]
  - SYNCOPE [None]
  - ANAEMIA [None]
  - LOSS OF CONSCIOUSNESS [None]
  - HEADACHE [None]
  - RENAL FAILURE ACUTE [None]
  - DYSPNOEA [None]
  - DEHYDRATION [None]
  - CARDIAC FAILURE CONGESTIVE [None]
  - HAEMOGLOBIN DECREASED [None]
  - FATIGUE [None]
